FAERS Safety Report 17774639 (Version 1)
Quarter: 2020Q2

REPORT INFORMATION
  Report Type: Report from Study
  Country: US (occurrence: US)
  Receive Date: 20200513
  Receipt Date: 20200513
  Transmission Date: 20200714
  Serious: No
  Sender: FDA-Public Use
  Company Number: US-ACADIA PHARMACEUTICALS INC.-ACA-2019-015141

PATIENT
  Age: 79 Year
  Sex: Female

DRUGS (1)
  1. NUPLAZID [Suspect]
     Active Substance: PIMAVANSERIN TARTRATE
     Indication: MENTAL DISORDER
     Dosage: 34 MILLIGRAM, QD
     Route: 048
     Dates: start: 20191213

REACTIONS (2)
  - Hallucination [Unknown]
  - Confusional state [Unknown]

NARRATIVE: CASE EVENT DATE: 20191218
